FAERS Safety Report 17493699 (Version 1)
Quarter: 2020Q1

REPORT INFORMATION
  Report Type: Spontaneous
  Country: US (occurrence: US)
  Receive Date: 20200303
  Receipt Date: 20200303
  Transmission Date: 20200409
  Serious: No
  Sender: FDA-Public Use
  Company Number: US-AMNEAL PHARMACEUTICALS-2019-IPXL-01275

PATIENT
  Age: 79 Year
  Sex: Male

DRUGS (1)
  1. RYTARY [Suspect]
     Active Substance: CARBIDOPA\LEVODOPA
     Indication: PARKINSON^S DISEASE
     Dosage: 2 DOSAGE FORM, QID
     Route: 048
     Dates: start: 20190607

REACTIONS (4)
  - Aggression [Unknown]
  - Drug ineffective [Unknown]
  - Parkinson^s disease [Unknown]
  - Dyskinesia [Unknown]

NARRATIVE: CASE EVENT DATE: 20190607
